FAERS Safety Report 6446049-9 (Version None)
Quarter: 2009Q4

REPORT INFORMATION
  Report Type: 
  Country: None (occurrence: None)
  Receive Date: 20091119
  Receipt Date: 20091104
  Transmission Date: 20100525
  Serious: Yes (Hospitalization, Other)
  Sender: FDA-Public Use
  Company Number: US-BAYER-200929057NA

PATIENT
  Age: 50 Year
  Sex: Female

DRUGS (1)
  1. MIRENA [Suspect]
     Indication: MENORRHAGIA
     Dosage: CONTINUOUS
     Route: 015
     Dates: start: 20090603, end: 20090723

REACTIONS (11)
  - ABDOMINAL ADHESIONS [None]
  - APPENDICECTOMY [None]
  - BODY TEMPERATURE INCREASED [None]
  - ILEUS [None]
  - LOCALISED INTRAABDOMINAL FLUID COLLECTION [None]
  - NAUSEA [None]
  - PAIN [None]
  - PELVIC PAIN [None]
  - TUBO-OVARIAN ABSCESS [None]
  - VOMITING [None]
  - WHITE BLOOD CELL COUNT INCREASED [None]
